FAERS Safety Report 5928574-X (Version None)
Quarter: 2008Q3

REPORT INFORMATION
  Report Type: 
  Country: None (occurrence: None)
  Receive Date: 20080923
  Receipt Date: 20071102
  Transmission Date: 20090109
  Serious: Yes (Hospitalization)
  Sender: FDA-Public Use
  Company Number: WAES 0711USA00645

PATIENT
  Age: 67 Year
  Sex: Male

DRUGS (2)
  1. VYTORIN [Suspect]
     Indication: CORONARY ARTERY DISEASE
     Dosage: 10-40 MG/DAILY/PO
     Route: 048
     Dates: end: 20071031
  2. NIASPAN [Concomitant]

REACTIONS (1)
  - HEPATITIS [None]
